FAERS Safety Report 23210798 (Version 2)
Quarter: 2023Q4

REPORT INFORMATION
  Report Type: Report from Study
  Country: US (occurrence: US)
  Receive Date: 20231121
  Receipt Date: 20231222
  Transmission Date: 20240109
  Serious: Yes (Other)
  Sender: FDA-Public Use
  Company Number: US-GILEAD-2023-0648033

PATIENT
  Age: 31 Year
  Sex: Male

DRUGS (8)
  1. AZTREONAM LYSINE [Suspect]
     Active Substance: AZTREONAM LYSINE
     Indication: Pseudomonas infection
     Dosage: 75 MG, TID, SEPARATE TREATMENT BY 4 HOURS MINIMUM CYCLING 2
     Route: 055
     Dates: start: 20220211
  2. AZTREONAM LYSINE [Suspect]
     Active Substance: AZTREONAM LYSINE
     Indication: Cystic fibrosis lung
  3. FIASP [Concomitant]
     Active Substance: INSULIN ASPART
     Dosage: UNK
  4. CREON [Concomitant]
     Active Substance: PANCRELIPASE AMYLASE\PANCRELIPASE LIPASE\PANCRELIPASE PROTEASE
     Dosage: UNK
  5. SODIUM CHLORIDE [Concomitant]
     Active Substance: SODIUM CHLORIDE
     Dosage: UNK
  6. COMBIVENT [Concomitant]
     Active Substance: ALBUTEROL SULFATE\IPRATROPIUM BROMIDE
     Dosage: UNK
  7. AZITHROMYCIN [Concomitant]
     Active Substance: AZITHROMYCIN
     Dosage: UNK
  8. PULMOZYME [Concomitant]
     Active Substance: DORNASE ALFA
     Dosage: UNK

REACTIONS (4)
  - Sepsis [Unknown]
  - Central venous catheterisation [Unknown]
  - Upper respiratory tract infection [Unknown]
  - Intentional dose omission [Unknown]

NARRATIVE: CASE EVENT DATE: 20231101
